FAERS Safety Report 4684482-6 (Version None)
Quarter: 2005Q2

REPORT INFORMATION
  Report Type: 
  Country: None (occurrence: None)
  Receive Date: 20050606
  Receipt Date: 20050503
  Transmission Date: 20051028
  Serious: Yes (Hospitalization)
  Sender: FDA-Public Use
  Company Number: A0557008A

PATIENT
  Age: 44 Year
  Sex: Female
  Weight: 71.2601 kg

DRUGS (5)
  1. CALCIUM CARBONATE (FORMULATION UNKNOWN) (CALCIUM CARBONATE) [Suspect]
     Indication: MINERAL SUPPLEMENTATION
     Dosage: ORAL
     Route: 048
     Dates: start: 19921101
  2. CALCIUM CARBONATE TABLET (CALCIUM CARBONATE) [Suspect]
     Indication: MINERAL SUPPLEMENTATION
     Dosage: FOUR TIMES PER DAY / ORAL
     Route: 048
  3. RALOXIFENE HYDROCHLORIDE [Concomitant]
  4. FIBER [Concomitant]
  5. CALCIUM CARBONATE [Concomitant]

REACTIONS (18)
  - ABDOMINAL DISCOMFORT [None]
  - ABDOMINAL DISTENSION [None]
  - BONE PAIN [None]
  - COLITIS [None]
  - COLONIC POLYP [None]
  - DIVERTICULITIS [None]
  - DIVERTICULUM [None]
  - FEELING ABNORMAL [None]
  - GASTRITIS [None]
  - GASTROINTESTINAL NEOPLASM [None]
  - HELICOBACTER INFECTION [None]
  - INCISION SITE COMPLICATION [None]
  - INFECTION [None]
  - LARGE INTESTINAL ULCER [None]
  - NAUSEA [None]
  - OSTEOPOROSIS [None]
  - PHARYNGOLARYNGEAL PAIN [None]
  - STOMACH DISCOMFORT [None]
